FAERS Safety Report 8605793-5 (Version None)
Quarter: 2012Q3

REPORT INFORMATION
  Report Type: 
  Country: None (occurrence: None)
  Receive Date: 20120809
  Receipt Date: 20120809
  Transmission Date: 20120928
  Serious: Yes (Other)
  Sender: FDA-Public Use
  Company Number: None

PATIENT
  Sex: Female
  Weight: 111.1313 kg

DRUGS (3)
  1. AZITHROMYCIN [Suspect]
     Indication: OROPHARYNGEAL PAIN
     Dosage: 250 MG FIRST DAY 2 TABS 2ND THRU 5TH DAY 1 TAB
     Dates: start: 20120719, end: 20120723
  2. AZITHROMYCIN [Suspect]
     Indication: PULMONARY CONGESTION
     Dosage: 250 MG FIRST DAY 2 TABS 2ND THRU 5TH DAY 1 TAB
     Dates: start: 20120719, end: 20120723
  3. AZITHROMYCIN [Suspect]
     Indication: DYSPNOEA
     Dosage: 250 MG FIRST DAY 2 TABS 2ND THRU 5TH DAY 1 TAB
     Dates: start: 20120719, end: 20120723

REACTIONS (4)
  - PNEUMONIA [None]
  - PRODUCT QUALITY ISSUE [None]
  - DRUG INEFFECTIVE [None]
  - FEELING ABNORMAL [None]
